FAERS Safety Report 6583570-7 (Version None)
Quarter: 2010Q1

REPORT INFORMATION
  Report Type: 
  Country: None (occurrence: None)
  Receive Date: 20100216
  Receipt Date: 20100207
  Transmission Date: 20100710
  Serious: Yes (Hospitalization)
  Sender: FDA-Public Use
  Company Number: DK-ABBOTT-10P-044-0624872-00

PATIENT
  Sex: Male
  Weight: 116 kg

DRUGS (1)
  1. REDUCTIL [Suspect]
     Indication: OVERWEIGHT
     Dates: start: 20090401

REACTIONS (8)
  - BLOOD PRESSURE INCREASED [None]
  - CARDIAC FAILURE [None]
  - CARDIOMYOPATHY [None]
  - DILATATION VENTRICULAR [None]
  - DYSPNOEA [None]
  - ERECTILE DYSFUNCTION [None]
  - HOT FLUSH [None]
  - OEDEMA [None]
